FAERS Safety Report 13285467 (Version 1)
Quarter: 2017Q1

REPORT INFORMATION
  Report Type: Spontaneous
  Country: US (occurrence: US)
  Receive Date: 20170301
  Receipt Date: 20170301
  Transmission Date: 20170428
  Serious: Yes (Hospitalization)
  Sender: FDA-Public Use
  Company Number: None

PATIENT
  Age: 65 Year
  Sex: Male
  Weight: 81.5 kg

DRUGS (1)
  1. AMITRIPTYLINE [Suspect]
     Active Substance: AMITRIPTYLINE
     Indication: DEPRESSION
     Dosage: MG PO
     Route: 048
     Dates: start: 20161130, end: 20170102

REACTIONS (10)
  - Confusional state [None]
  - Dysarthria [None]
  - Agitation [None]
  - Speech disorder [None]
  - Tachycardia [None]
  - Anticholinergic syndrome [None]
  - Mental status changes [None]
  - Encephalopathy [None]
  - Gait disturbance [None]
  - Blood creatine phosphokinase increased [None]

NARRATIVE: CASE EVENT DATE: 20170101
